FAERS Safety Report 7688715-3 (Version None)
Quarter: 2011Q3

REPORT INFORMATION
  Report Type: 
  Country: None (occurrence: None)
  Receive Date: 20110817
  Receipt Date: 20110811
  Transmission Date: 20111222
  Serious: Yes (Hospitalization)
  Sender: FDA-Public Use
  Company Number: JP-GLAXOSMITHKLINE-B0734985A

PATIENT
  Sex: Male

DRUGS (6)
  1. AMLODIPINE [Concomitant]
     Indication: HYPERTENSION
     Dosage: 5MG PER DAY
     Route: 048
  2. ISOSORBIDE DINITRATE [Concomitant]
     Indication: ANGINA PECTORIS
     Dosage: 20MG PER DAY
     Route: 048
  3. PRAVAMATE [Concomitant]
     Indication: HYPERLIPIDAEMIA
     Dosage: 10MG PER DAY
     Route: 048
  4. VALTREX [Suspect]
     Indication: HERPES ZOSTER
     Dosage: 3G PER DAY
     Route: 048
     Dates: start: 20110719, end: 20110721
  5. ASPIRIN [Concomitant]
     Indication: CEREBRAL INFARCTION
     Dosage: 100MG PER DAY
     Route: 048
  6. LOSARTAN POTASSIUM [Concomitant]
     Indication: HYPERTENSION
     Dosage: 12.5MG PER DAY
     Route: 048

REACTIONS (3)
  - DECREASED APPETITE [None]
  - RENAL FAILURE ACUTE [None]
  - FEELING ABNORMAL [None]
